FAERS Safety Report 6363825-1 (Version None)
Quarter: 2009Q3

REPORT INFORMATION
  Report Type: 
  Country: None (occurrence: None)
  Receive Date: 20090919
  Receipt Date: 20090707
  Transmission Date: 20100115
  Serious: No
  Sender: FDA-Public Use
  Company Number: US-ABBOTT-09P-163-0584469-00

PATIENT
  Sex: Female
  Weight: 3.388 kg

DRUGS (2)
  1. HUMIRA [Suspect]
     Indication: PATERNAL DRUGS AFFECTING FOETUS
     Route: 050
  2. HUMIRA [Suspect]
     Indication: DRUG EXPOSURE DURING PREGNANCY

REACTIONS (6)
  - ACOUSTIC STIMULATION TESTS ABNORMAL [None]
  - DRUG EXPOSURE DURING PREGNANCY [None]
  - MECONIUM STAIN [None]
  - PATERNAL DRUGS AFFECTING FOETUS [None]
  - PYREXIA [None]
  - WHITE BLOOD CELL COUNT INCREASED [None]
